FAERS Safety Report 4537747-2 (Version None)
Quarter: 2004Q4

REPORT INFORMATION
  Report Type: 
  Country: None (occurrence: None)
  Receive Date: 20041224
  Receipt Date: 20041025
  Transmission Date: 20050328
  Serious: Yes (Death, Life-Threatening, Hospitalization)
  Sender: FDA-Public Use
  Company Number: DE-MERCK-0410DEU00701

PATIENT
  Age: 58 Year
  Sex: Female

DRUGS (2)
  1. VIOXX [Suspect]
     Indication: RHEUMATOID ARTHRITIS
     Route: 048
     Dates: start: 20020517, end: 20021201
  2. [THERAPY UNSPECIFIED] [Concomitant]
     Route: 065

REACTIONS (12)
  - ANGINA UNSTABLE [None]
  - ARTHRALGIA [None]
  - CARDIAC FAILURE [None]
  - COLLAGEN DISORDER [None]
  - CORONARY ARTERY DISEASE [None]
  - DYSPNOEA [None]
  - HYPERLIPIDAEMIA [None]
  - HYPERTENSIVE CARDIOMYOPATHY [None]
  - JOINT SWELLING [None]
  - MYOCARDIAL INFARCTION [None]
  - PANNICULITIS [None]
  - SUDDEN DEATH [None]
